FAERS Safety Report 18851486 (Version 1)
Quarter: 2021Q1

REPORT INFORMATION
  Report Type: Spontaneous
  Country: US (occurrence: US)
  Receive Date: 20210204
  Receipt Date: 20210204
  Transmission Date: 20210420
  Serious: No
  Sender: FDA-Public Use
  Company Number: None

PATIENT
  Age: 53 Year
  Sex: Female
  Weight: 73.35 kg

DRUGS (10)
  1. TRIAMCINOLONE ACETONIDE (NASACORT AQ NA) [Concomitant]
  2. POLYETHYLENE GLYCOL 3350. [Concomitant]
     Active Substance: POLYETHYLENE GLYCOL 3350
  3. OFLOXACIN. [Concomitant]
     Active Substance: OFLOXACIN
  4. NAPROXEN SODIUM (ALEVE PO) [Concomitant]
  5. VITAMIN D3 [Concomitant]
     Active Substance: CHOLECALCIFEROL
  6. ACETAMINOPHEN. [Concomitant]
     Active Substance: ACETAMINOPHEN
  7. CEPHALEXIN 500MG CAPSULES [Suspect]
     Active Substance: CEPHALEXIN
     Indication: EYE INFECTION
     Dosage: ?          QUANTITY:1 CAPSULE(S);?
     Route: 048
     Dates: start: 20210124, end: 20210125
  8. MULTIPLE VITAMIN (MULTIVITAMIN PO) [Concomitant]
  9. LORATADINE (DISINTEGRATING) [Concomitant]
  10. SODIUM CHLORIDE?SODIUM BICARB [Concomitant]

REACTIONS (4)
  - Urticaria [None]
  - Abdominal discomfort [None]
  - Pruritus [None]
  - Dizziness [None]

NARRATIVE: CASE EVENT DATE: 20210125
